FAERS Safety Report 6827384-9 (Version None)
Quarter: 2010Q3

REPORT INFORMATION
  Report Type: 
  Country: None (occurrence: None)
  Receive Date: 20100709
  Receipt Date: 20070321
  Transmission Date: 20110219
  Serious: No
  Sender: FDA-Public Use
  Company Number: US-PFIZER INC-2007005323

PATIENT
  Sex: Female
  Weight: 54.43 kg

DRUGS (8)
  1. CHANTIX [Suspect]
     Indication: SMOKING CESSATION THERAPY
     Dates: start: 20070101
  2. GABAPENTIN [Interacting]
  3. OXYCONTIN [Interacting]
     Indication: PAIN
  4. OXYCODONE HCL [Interacting]
     Indication: PAIN
  5. THEOPHYLLINE [Concomitant]
  6. HYDROCHLOROTHIAZIDE [Concomitant]
  7. SERAX [Concomitant]
     Indication: INSOMNIA
  8. NEURONTIN [Concomitant]

REACTIONS (6)
  - CHILLS [None]
  - DIZZINESS [None]
  - DRUG INTERACTION [None]
  - FATIGUE [None]
  - FEELING ABNORMAL [None]
  - HEADACHE [None]
